FAERS Safety Report 6403302-2 (Version None)
Quarter: 2009Q4

REPORT INFORMATION
  Report Type: 
  Country: None (occurrence: None)
  Receive Date: 20091016
  Receipt Date: 20081026
  Transmission Date: 20100525
  Serious: No
  Sender: FDA-Public Use
  Company Number: A0754301A

PATIENT
  Sex: Female

DRUGS (1)
  1. CEFTIN [Suspect]
     Indication: TRACHEITIS
     Route: 048
     Dates: start: 20060101

REACTIONS (2)
  - FOOD ALLERGY [None]
  - WHITE BLOOD CELL COUNT DECREASED [None]
